FAERS Safety Report 9296399 (Version 1)
Quarter: 2013Q2

REPORT INFORMATION
  Report Type: Spontaneous
  Country: US (occurrence: US)
  Receive Date: 20130517
  Receipt Date: 20130517
  Transmission Date: 20140414
  Serious: No
  Sender: FDA-Public Use
  Company Number: US-009507513-1305USA004778

PATIENT
  Age: 101 Year
  Sex: Female

DRUGS (5)
  1. PRINIVIL [Suspect]
     Indication: HYPERTENSION
     Dosage: 2.5 MG, QD
     Route: 048
  2. HYDROCHLOROTHIAZIDE [Concomitant]
  3. LEVOTHYROXINE SODIUM [Concomitant]
  4. CLOPIDOGREL [Concomitant]
  5. POTASSIUM CHLORIDE - USP [Concomitant]

REACTIONS (1)
  - Hallucination, visual [Recovered/Resolved]
